FAERS Safety Report 7577101-2 (Version None)
Quarter: 2011Q2

REPORT INFORMATION
  Report Type: 
  Country: None (occurrence: None)
  Receive Date: 20110628
  Receipt Date: 20110623
  Transmission Date: 20111010
  Serious: No
  Sender: FDA-Public Use
  Company Number: US-PFIZER INC-2011139995

PATIENT
  Sex: Female
  Weight: 90.703 kg

DRUGS (5)
  1. TRIAZOLAM [Suspect]
     Indication: INSOMNIA
     Dosage: 0.25 MG, DAILY
     Route: 048
     Dates: end: 20110616
  2. VALSARTAN [Suspect]
     Indication: HYPERTENSION
     Dosage: UNK, DAILY
     Route: 048
     Dates: end: 20101201
  3. LIPITOR [Suspect]
     Indication: HYPERTENSION
     Dosage: UNK
     Route: 048
  4. SYNTHROID [Concomitant]
     Indication: HYPOTHYROIDISM
     Dosage: UNK, DAILY
  5. ATENOLOL [Concomitant]
     Indication: HYPERTENSION
     Dosage: UNK, 2X/DAY

REACTIONS (6)
  - HYPERSENSITIVITY [None]
  - ABDOMINAL DISCOMFORT [None]
  - MUSCLE DISORDER [None]
  - ERYTHEMA [None]
  - FEELING ABNORMAL [None]
  - PRODUCT QUALITY ISSUE [None]
